FAERS Safety Report 25151915 (Version 1)
Quarter: 2025Q2

REPORT INFORMATION
  Report Type: Spontaneous
  Country: CN (occurrence: CN)
  Receive Date: 20250402
  Receipt Date: 20250402
  Transmission Date: 20250717
  Serious: Yes (Hospitalization, Other)
  Sender: BAYER
  Company Number: CN-BAYER-2025A044496

PATIENT
  Age: 81 Year
  Sex: Male
  Weight: 55 kg

DRUGS (2)
  1. GLUCOBAY [Interacting]
     Active Substance: ACARBOSE
     Indication: Diabetes mellitus
     Dosage: 100 MG, TID WITH MEALS
     Route: 048
     Dates: start: 20241018, end: 20250113
  2. GLUCOTROL [Interacting]
     Active Substance: GLIPIZIDE
     Indication: Diabetes mellitus
     Dosage: 1 DF, QD WITH MEALS
     Route: 048
     Dates: start: 20241018

REACTIONS (6)
  - Hypoglycaemia [Recovered/Resolved]
  - Altered state of consciousness [Recovered/Resolved]
  - Diarrhoea [None]
  - Nausea [None]
  - Vomiting [None]
  - Hypophagia [None]

NARRATIVE: CASE EVENT DATE: 20250110
